FAERS Safety Report 16755741 (Version 1)
Quarter: 2019Q3

REPORT INFORMATION
  Report Type: Spontaneous
  Country: US (occurrence: US)
  Receive Date: 20190829
  Receipt Date: 20190829
  Transmission Date: 20191005
  Serious: Yes (Other)
  Sender: FDA-Public Use
  Company Number: US-PFIZER INC-2019369363

PATIENT
  Age: 62 Year
  Sex: Female
  Weight: 58.6 kg

DRUGS (4)
  1. POTASSIUM CHLORIDE. [Suspect]
     Active Substance: POTASSIUM CHLORIDE
     Dosage: UNK
     Dates: start: 201905
  2. XELODA [Concomitant]
     Active Substance: CAPECITABINE
     Dosage: UNK
  3. CAPECITABINE. [Concomitant]
     Active Substance: CAPECITABINE
     Dosage: 3500 MG, 2X/DAY
  4. OXALIPLATIN. [Suspect]
     Active Substance: OXALIPLATIN
     Indication: COLORECTAL CANCER STAGE III
     Dosage: 215 MG, EVERY 3 WEEKS
     Route: 042
     Dates: start: 201905, end: 20190702

REACTIONS (3)
  - Vascular pain [Recovered/Resolved]
  - Platelet count decreased [Unknown]
  - Administration site extravasation [Recovered/Resolved]

NARRATIVE: CASE EVENT DATE: 2019
